FAERS Safety Report 4841771-X (Version None)
Quarter: 2005Q4

REPORT INFORMATION
  Report Type: 
  Country: None (occurrence: None)
  Receive Date: 20051130
  Receipt Date: 20051003
  Transmission Date: 20060501
  Serious: Yes (Hospitalization)
  Sender: FDA-Public Use
  Company Number: PHHO2005US16106

PATIENT
  Age: 80 Year
  Sex: Male
  Weight: 170.2 kg

DRUGS (6)
  1. BENAZEPRIL HCL AND HYDROCHLOROTHIAZIDE [Suspect]
     Indication: HYPERTENSION
     Dosage: LEVEL 1
     Route: 048
     Dates: start: 20040301, end: 20040328
  2. BENAZEPRIL HCL AND HYDROCHLOROTHIAZIDE [Suspect]
     Dosage: LEVEL 2
     Route: 048
     Dates: start: 20040329, end: 20040526
  3. BENAZEPRIL HCL AND HYDROCHLOROTHIAZIDE [Suspect]
     Dosage: LEVEL 3
     Route: 048
     Dates: start: 20040527, end: 20040610
  4. METOPROLOL (ASTRAZENECA) [Suspect]
     Indication: HYPERTENSION
     Dosage: 50 MG, BID
     Route: 048
     Dates: start: 20040610, end: 20040827
  5. AMIODARONE [Concomitant]
     Indication: ARRHYTHMIA
     Dosage: 200 MG, BID
     Route: 048
     Dates: start: 20040610, end: 20040827
  6. LASIX [Concomitant]
     Indication: HYPERTENSION
     Dosage: 20 MG, QD
     Route: 048
     Dates: start: 20040709, end: 20040827

REACTIONS (5)
  - ANGINA UNSTABLE [None]
  - ASTHENIA [None]
  - BRADYCARDIA [None]
  - DISEASE PROGRESSION [None]
  - DYSPNOEA [None]
